FAERS Safety Report 8799401 (Version 1)
Quarter: 2012Q4

REPORT INFORMATION
  Report Type: Spontaneous
  Country: US (occurrence: None)
  Receive Date: 20120918
  Receipt Date: 20120918
  Transmission Date: 20130627
  Serious: Yes (Life-Threatening)
  Sender: FDA-Public Use
  Company Number: None

PATIENT
  Age: 68 Year
  Sex: Female
  Weight: 79.38 kg

DRUGS (1)
  1. ONGLYZA [Suspect]
     Dosage: 1 daily po
     Route: 048
     Dates: start: 20120905, end: 20120907

REACTIONS (4)
  - Urinary tract infection [None]
  - Haemorrhage [None]
  - Pain [None]
  - Chills [None]
